FAERS Safety Report 22026037 (Version 1)
Quarter: 2023Q1

REPORT INFORMATION
  Report Type: Report from Study
  Country: ZA (occurrence: ZA)
  Receive Date: 20230223
  Receipt Date: 20230223
  Transmission Date: 20230417
  Serious: Yes (Other)
  Sender: FDA-Public Use
  Company Number: ZA-Axellia-004634

PATIENT

DRUGS (7)
  1. COLISTIMETHATE SODIUM [Suspect]
     Active Substance: COLISTIMETHATE SODIUM
     Indication: Enterobacter infection
     Dosage: 40 000 IU/KG PER DOSE
  2. VANCOMYCIN [Suspect]
     Active Substance: VANCOMYCIN
     Indication: Enterobacter infection
  3. AMIKACIN [Concomitant]
     Active Substance: AMIKACIN
     Indication: Enterobacter infection
  4. MEROPENEM [Concomitant]
     Active Substance: MEROPENEM
     Indication: Enterobacter infection
  5. IMIPENEM [Concomitant]
     Active Substance: IMIPENEM
     Indication: Enterobacter infection
  6. TIGECYCLINE [Concomitant]
     Active Substance: TIGECYCLINE
     Indication: Enterobacter infection
  7. TOBRAMYCIN [Concomitant]
     Active Substance: TOBRAMYCIN
     Indication: Enterobacter infection

REACTIONS (1)
  - Renal impairment [Unknown]
